FAERS Safety Report 12953873 (Version 3)
Quarter: 2017Q1

REPORT INFORMATION
  Report Type: Spontaneous
  Country: US (occurrence: US)
  Receive Date: 20161118
  Receipt Date: 20170306
  Transmission Date: 20170428
  Serious: No
  Sender: FDA-Public Use
  Company Number: US-ASTRAZENECA-2016SF18083

PATIENT
  Age: 762 Month
  Sex: Male
  Weight: 102.7 kg

DRUGS (3)
  1. HUMALOG [Concomitant]
     Active Substance: INSULIN LISPRO
     Indication: DIABETES MELLITUS
     Dosage: 1.67 UNITS/PER HOUR, ONCE EVERY OTHER DAY WHEN ON VICTOZA
  2. VICTOZA [Concomitant]
     Active Substance: LIRAGLUTIDE
  3. BYDUREON [Suspect]
     Active Substance: EXENATIDE
     Indication: TYPE 2 DIABETES MELLITUS
     Route: 058
     Dates: start: 201609

REACTIONS (3)
  - Injection site nodule [Unknown]
  - Needle issue [Unknown]
  - Diabetes mellitus inadequate control [Unknown]

NARRATIVE: CASE EVENT DATE: 201609
